FAERS Safety Report 13966271 (Version 1)
Quarter: 2017Q3

REPORT INFORMATION
  Report Type: Spontaneous
  Country: US (occurrence: US)
  Receive Date: 20170913
  Receipt Date: 20170913
  Transmission Date: 20171128
  Serious: Yes (Other)
  Sender: FDA-Public Use
  Company Number: US-3M HEALTH CARE-USEN-A45QH8-S002

PATIENT
  Age: 69 Year
  Sex: Female

DRUGS (1)
  1. DURAPREP [Suspect]
     Active Substance: IODINE POVACRYLEX\ISOPROPYL ALCOHOL
     Indication: PREOPERATIVE CARE
     Dosage: 26 ML MILLILITRE(S), SINGLE
     Route: 061
     Dates: start: 20151027, end: 20151027

REACTIONS (4)
  - Erythema [Unknown]
  - Pruritus [Unknown]
  - Blister [Unknown]
  - Swelling [Unknown]

NARRATIVE: CASE EVENT DATE: 20151027
